FAERS Safety Report 9037154 (Version 1)
Quarter: 2013Q1

REPORT INFORMATION
  Report Type: Spontaneous
  Country: US (occurrence: None)
  Receive Date: 20130115
  Receipt Date: 20130115
  Transmission Date: 20140127
  Serious: Yes (Hospitalization, Other)
  Sender: FDA-Public Use
  Company Number: 2012-1465

PATIENT
  Age: 46 Year
  Sex: Male

DRUGS (2)
  1. KYPROLIS [Suspect]
     Indication: PLASMA CELL MYELOMA
     Dates: start: 20121108
  2. CYTOXAN (CYCLOPHOSPHAMIDE) (300 MILLIGRAM(S)/SQ.METER) (CYCLOPHOSPHAMIDE) [Concomitant]

REACTIONS (6)
  - Pneumonia [None]
  - Pain [None]
  - Drug ineffective [None]
  - Pleural effusion [None]
  - Asthenia [None]
  - Blood count abnormal [None]
